FAERS Safety Report 11651176 (Version 2)
Quarter: 2015Q4

REPORT INFORMATION
  Report Type: Spontaneous
  Country: US (occurrence: US)
  Receive Date: 20151021
  Receipt Date: 20151022
  Transmission Date: 20160304
  Serious: No
  Sender: FDA-Public Use
  Company Number: US-PURDUE-USA-2015-0126446

PATIENT
  Age: 53 Year
  Sex: Female
  Weight: 40.82 kg

DRUGS (1)
  1. OXYCODONE HCL TABLETS (RHODES 91-490) [Suspect]
     Active Substance: OXYCODONE HYDROCHLORIDE
     Indication: PAIN
     Dosage: 15 MG, QID PRN
     Route: 048
     Dates: start: 20150909

REACTIONS (4)
  - Drug ineffective [Unknown]
  - Inadequate analgesia [Unknown]
  - Bedridden [Unknown]
  - Gait disturbance [Unknown]

NARRATIVE: CASE EVENT DATE: 20150909
